FAERS Safety Report 4368981-2 (Version None)
Quarter: 2004Q2

REPORT INFORMATION
  Report Type: 
  Country: None (occurrence: None)
  Receive Date: 20040603
  Receipt Date: 20040525
  Transmission Date: 20050107
  Serious: Yes (Death)
  Sender: FDA-Public Use
  Company Number: PHRM2004FR01932

PATIENT
  Age: 90 Year
  Sex: Female

DRUGS (2)
  1. EXELON [Suspect]
     Route: 048
  2. ATARAX [Concomitant]
     Route: 048

REACTIONS (1)
  - DEATH [None]
